FAERS Safety Report 14924033 (Version 3)
Quarter: 2018Q3

REPORT INFORMATION
  Report Type: Spontaneous
  Country: US (occurrence: US)
  Receive Date: 20180522
  Receipt Date: 20180706
  Transmission Date: 20181010
  Serious: No
  Sender: FDA-Public Use
  Company Number: US-ALKERMES INC.-ALK-2018-002707

PATIENT
  Age: 60 Year
  Sex: Male
  Weight: 104.31 kg

DRUGS (11)
  1. WELLBUTRIN [Concomitant]
     Active Substance: BUPROPION HYDROCHLORIDE
     Indication: PRODUCT USED FOR UNKNOWN INDICATION
  2. VIVITROL [Suspect]
     Active Substance: NALTREXONE
     Indication: ALCOHOLISM
     Dosage: 380 MG, QMO
     Route: 030
     Dates: start: 20180511, end: 20180514
  3. OTHER THERAPEUTIC PRODUCTS [Suspect]
     Active Substance: UNSPECIFIED INGREDIENT
     Indication: HEADACHE
  4. ALBUTEROL. [Concomitant]
     Active Substance: ALBUTEROL
     Indication: PRODUCT USED FOR UNKNOWN INDICATION
  5. LISINOPRIL + HIDROCLOROTIAZIDA [Concomitant]
     Active Substance: HYDROCHLOROTHIAZIDE\LISINOPRIL
     Indication: PRODUCT USED FOR UNKNOWN INDICATION
  6. MIRTAZAPINE. [Concomitant]
     Active Substance: MIRTAZAPINE
     Indication: INSOMNIA
  7. OTHER THERAPEUTIC PRODUCTS [Suspect]
     Active Substance: UNSPECIFIED INGREDIENT
     Indication: EYE SWELLING
  8. OTHER THERAPEUTIC PRODUCTS [Suspect]
     Active Substance: UNSPECIFIED INGREDIENT
     Indication: TREMOR
  9. OTHER THERAPEUTIC PRODUCTS [Suspect]
     Active Substance: UNSPECIFIED INGREDIENT
     Indication: SWELLING FACE
     Dosage: UNK
     Route: 065
     Dates: start: 20180514
  10. TRAZODONE [Concomitant]
     Active Substance: TRAZODONE HYDROCHLORIDE
     Indication: PRODUCT USED FOR UNKNOWN INDICATION
  11. OTHER THERAPEUTIC PRODUCTS [Suspect]
     Active Substance: UNSPECIFIED INGREDIENT
     Indication: DEPRESSION
     Dosage: UNK
     Route: 065

REACTIONS (11)
  - Rash [Recovering/Resolving]
  - Paraesthesia [Recovering/Resolving]
  - Tremor [Recovering/Resolving]
  - Hypoaesthesia [Recovering/Resolving]
  - Anxiety [Recovering/Resolving]
  - Drug hypersensitivity [Recovering/Resolving]
  - Swelling face [Recovering/Resolving]
  - Eye swelling [Recovering/Resolving]
  - Stress [Recovering/Resolving]
  - Headache [Recovering/Resolving]
  - Tinnitus [Recovering/Resolving]

NARRATIVE: CASE EVENT DATE: 20180511
